FAERS Safety Report 8583449-5 (Version None)
Quarter: 2012Q3

REPORT INFORMATION
  Report Type: 
  Country: None (occurrence: None)
  Receive Date: 20120809
  Receipt Date: 20120731
  Transmission Date: 20120928
  Serious: Yes (Death)
  Sender: FDA-Public Use
  Company Number: GB-BAXTER-2012BAX010463

PATIENT
  Sex: Male
  Weight: 89.5 kg

DRUGS (3)
  1. DIANEAL [Suspect]
     Route: 033
     Dates: start: 20070612
  2. DIANEAL [Suspect]
     Route: 033
     Dates: start: 20070612
  3. EXTRANEAL [Suspect]
     Route: 033
     Dates: start: 20070612

REACTIONS (4)
  - ASPHYXIA [None]
  - FALL [None]
  - CEREBROVASCULAR ACCIDENT [None]
  - PYREXIA [None]
